FAERS Safety Report 7424195-0 (Version None)
Quarter: 2011Q2

REPORT INFORMATION
  Report Type: 
  Country: None (occurrence: None)
  Receive Date: 20110419
  Receipt Date: 20110405
  Transmission Date: 20111010
  Serious: Yes (Hospitalization)
  Sender: FDA-Public Use
  Company Number: JP-JNJFOC-20101006359

PATIENT
  Age: 2 Year
  Sex: Male

DRUGS (3)
  1. IMMUNE GLOBULIN INTRAVENOUS (HUMAN) [Suspect]
     Indication: KAWASAKI'S DISEASE
     Route: 042
  2. REMICADE [Suspect]
     Indication: KAWASAKI'S DISEASE
     Route: 042
  3. METHYLPREDNISOLONE [Suspect]
     Indication: KAWASAKI'S DISEASE

REACTIONS (1)
  - INFECTIOUS MONONUCLEOSIS [None]
